FAERS Safety Report 4868578-1 (Version None)
Quarter: 2005Q4

REPORT INFORMATION
  Report Type: 
  Country: None (occurrence: None)
  Receive Date: 20051223
  Receipt Date: 20051215
  Transmission Date: 20060501
  Serious: Yes (Hospitalization, Other)
  Sender: FDA-Public Use
  Company Number: 2005169848

PATIENT
  Age: 37 Year
  Sex: Male
  Weight: 115.6672 kg

DRUGS (1)
  1. VIAGRA [Suspect]
     Indication: ERECTILE DYSFUNCTION
     Dosage: ORAL
     Route: 048
     Dates: start: 19990901, end: 19990901

REACTIONS (6)
  - BLOOD CHOLESTEROL INCREASED [None]
  - CARDIAC DISORDER [None]
  - CARDIAC VALVE DISEASE [None]
  - DRUG INEFFECTIVE [None]
  - LOW DENSITY LIPOPROTEIN DECREASED [None]
  - MYOCARDIAL INFARCTION [None]
